FAERS Safety Report 17116402 (Version 1)
Quarter: 2019Q4

REPORT INFORMATION
  Report Type: Spontaneous
  Country: ES (occurrence: ES)
  Receive Date: 20191205
  Receipt Date: 20191205
  Transmission Date: 20200122
  Serious: Yes (Life-Threatening, Hospitalization)
  Sender: FDA-Public Use
  Company Number: ES-MYLANLABS-2019M1118952

PATIENT
  Age: 77 Year
  Sex: Female
  Weight: 110 kg

DRUGS (7)
  1. NOLOTIL                            /00473101/ [Suspect]
     Active Substance: METAMIZOLE\PROPOXYPHENE
     Indication: PAIN
     Dosage: 2 GRAM, Q8H
     Route: 042
     Dates: start: 20190523, end: 20190608
  2. TRIAMCINOLONA ACETONIDO [Concomitant]
     Indication: RASH ERYTHEMATOUS
     Dosage: UNK
     Route: 061
     Dates: start: 20190606
  3. IPRATROPIO BROMURO [Suspect]
     Active Substance: IPRATROPIUM BROMIDE
     Indication: BRONCHIAL HYPERREACTIVITY
     Dosage: 500 MILLIGRAM, Q6H
     Route: 055
     Dates: start: 20190606
  4. MESNA. [Suspect]
     Active Substance: MESNA
     Indication: PRODUCT USED FOR UNKNOWN INDICATION
     Dosage: 600 MILLIGRAM, Q6H
     Route: 055
     Dates: start: 20190606, end: 20190608
  5. BISOPROLOL [Suspect]
     Active Substance: BISOPROLOL
     Indication: HYPERTENSION
     Dosage: 5 MILLIGRAM, QD
     Route: 048
     Dates: start: 20190606, end: 20190608
  6. ZINC OXIDE. [Concomitant]
     Active Substance: ZINC OXIDE
     Indication: RASH ERYTHEMATOUS
     Dosage: UNK
     Route: 061
     Dates: start: 20190606
  7. OMEPRAZOL                          /00661201/ [Concomitant]
     Active Substance: OMEPRAZOLE
     Indication: GASTRITIS PROPHYLAXIS
     Dosage: 20 MILLIGRAM, QD
     Route: 048
     Dates: start: 20190606

REACTIONS (1)
  - Anaphylactic shock [Recovered/Resolved]

NARRATIVE: CASE EVENT DATE: 20190608
